FAERS Safety Report 5414063-8 (Version None)
Quarter: 2007Q3

REPORT INFORMATION
  Report Type: 
  Country: None (occurrence: None)
  Receive Date: 20070814
  Receipt Date: 20070807
  Transmission Date: 20080115
  Serious: Yes (Other)
  Sender: FDA-Public Use
  Company Number: BR-PFIZER INC-2003174925BR

PATIENT
  Sex: Female
  Weight: 67 kg

DRUGS (2)
  1. DEPO-PROVERA SUSPENSION/INJ [Suspect]
     Indication: CONTRACEPTION
     Route: 030
     Dates: start: 20030101, end: 20030101
  2. DEPO-PROVERA SUSPENSION/INJ [Suspect]
     Route: 030
     Dates: start: 20070505, end: 20070505

REACTIONS (5)
  - AMENORRHOEA [None]
  - HEADACHE [None]
  - OVARIAN CYST [None]
  - THYROID DISORDER [None]
  - WEIGHT INCREASED [None]
